FAERS Safety Report 4677573-7 (Version None)
Quarter: 2005Q2

REPORT INFORMATION
  Report Type: 
  Country: None (occurrence: None)
  Receive Date: 20050526
  Receipt Date: 20050526
  Transmission Date: 20051028
  Serious: No
  Sender: FDA-Public Use
  Company Number: None

PATIENT
  Age: 80 Year
  Sex: Male
  Weight: 72.1219 kg

DRUGS (4)
  1. MONOPRIL [Suspect]
     Indication: HYPERTENSION
     Dosage: 10 MG DAILY
  2. GLIPIZIDE [Concomitant]
  3. METFORMIN [Concomitant]
  4. LOVASTATIN [Concomitant]

REACTIONS (1)
  - SWELLING FACE [None]
